FAERS Safety Report 5594001-8 (Version None)
Quarter: 2008Q1

REPORT INFORMATION
  Report Type: 
  Country: None (occurrence: None)
  Receive Date: 20080114
  Receipt Date: 20080102
  Transmission Date: 20080703
  Serious: Yes (Life-Threatening)
  Sender: FDA-Public Use
  Company Number: 2008BM000006

PATIENT
  Age: 19 Year
  Sex: Female
  Weight: 20 kg

DRUGS (1)
  1. NAGLAZYME [Suspect]
     Indication: MUCOPOLYSACCHARIDOSIS VI
     Dosage: 5 MG;IV
     Route: 042
     Dates: start: 20071205

REACTIONS (4)
  - HYPERSENSITIVITY [None]
  - HYPERTENSION [None]
  - RASH [None]
  - URTICARIA [None]
